FAERS Safety Report 21571893 (Version 2)
Quarter: 2022Q4

REPORT INFORMATION
  Report Type: Spontaneous
  Country: JP (occurrence: JP)
  Receive Date: 20221109
  Receipt Date: 20221117
  Transmission Date: 20230113
  Serious: Yes (Other)
  Sender: FDA-Public Use
  Company Number: JP-SA-SAC20221101000700

PATIENT
  Age: 18 Month
  Sex: Male
  Weight: 11 kg

DRUGS (16)
  1. LEVOCETIRIZINE [Suspect]
     Active Substance: LEVOCETIRIZINE
     Indication: Rhinitis
     Dosage: 2.5 ML, BID (2.5 MILLILITER, 2X/DAY (BID))
     Route: 048
     Dates: start: 202209, end: 20221015
  2. LEVOCETIRIZINE [Suspect]
     Active Substance: LEVOCETIRIZINE
     Indication: Nasal congestion
  3. LEVOCETIRIZINE [Suspect]
     Active Substance: LEVOCETIRIZINE
     Indication: Rhinorrhoea
  4. LEVOCETIRIZINE [Suspect]
     Active Substance: LEVOCETIRIZINE
     Indication: Nasal congestion
  5. LEVOCETIRIZINE [Suspect]
     Active Substance: LEVOCETIRIZINE
     Indication: Hypersensitivity
  6. LEVOCETIRIZINE [Suspect]
     Active Substance: LEVOCETIRIZINE
     Indication: Rhinitis allergic
  7. LEVOCETIRIZINE [Suspect]
     Active Substance: LEVOCETIRIZINE
     Indication: Rhinitis
  8. CARBOCYSTEINE [Suspect]
     Active Substance: CARBOCYSTEINE
     Indication: Rhinitis
     Dosage: UNK
     Route: 065
     Dates: start: 202209
  9. CARBOCYSTEINE [Suspect]
     Active Substance: CARBOCYSTEINE
     Indication: Nasal congestion
  10. CARBOCYSTEINE [Suspect]
     Active Substance: CARBOCYSTEINE
     Indication: Rhinorrhoea
  11. CARBOCYSTEINE [Suspect]
     Active Substance: CARBOCYSTEINE
     Indication: Nasal congestion
  12. PRANLUKAST [Suspect]
     Active Substance: PRANLUKAST
     Indication: Rhinitis
     Dosage: 2.5 MILLILITER, 2X/DAY (BID)
     Route: 048
     Dates: start: 202209
  13. PRANLUKAST [Suspect]
     Active Substance: PRANLUKAST
     Indication: Nasal congestion
  14. PRANLUKAST [Suspect]
     Active Substance: PRANLUKAST
     Indication: Rhinorrhoea
  15. PRANLUKAST [Suspect]
     Active Substance: PRANLUKAST
     Indication: Nasal congestion
  16. PRANLUKAST [Suspect]
     Active Substance: PRANLUKAST
     Indication: Hypersensitivity

REACTIONS (3)
  - Febrile convulsion [Unknown]
  - Overdose [Unknown]
  - Product use in unapproved indication [Unknown]

NARRATIVE: CASE EVENT DATE: 20220915
